FAERS Safety Report 7072539-4 (Version None)
Quarter: 2010Q4

REPORT INFORMATION
  Report Type: 
  Country: None (occurrence: None)
  Receive Date: 20101029
  Receipt Date: 20100326
  Transmission Date: 20110411
  Serious: No
  Sender: FDA-Public Use
  Company Number: A0843512A

PATIENT
  Age: 82 Year
  Sex: Female

DRUGS (4)
  1. ADVAIR DISKUS 100/50 [Suspect]
     Indication: ASTHMA
     Dosage: 1PUFF TWICE PER DAY
     Route: 055
     Dates: start: 20080201
  2. SIMVASTATIN [Concomitant]
  3. CALCIUM [Concomitant]
  4. ASPIRIN [Concomitant]

REACTIONS (5)
  - DYSPHONIA [None]
  - LIP EXFOLIATION [None]
  - MUSCLE SPASMS [None]
  - PRODUCT QUALITY ISSUE [None]
  - SECRETION DISCHARGE [None]
